FAERS Safety Report 18324467 (Version 1)
Quarter: 2020Q3

REPORT INFORMATION
  Report Type: Spontaneous
  Country: US (occurrence: US)
  Receive Date: 20200929
  Receipt Date: 20200929
  Transmission Date: 20201103
  Serious: No
  Sender: FDA-Public Use
  Company Number: US-BION-008354

PATIENT
  Age: 83 Year
  Sex: Female

DRUGS (1)
  1. LOPERAMIDE CAPSULES 2 MG [Suspect]
     Active Substance: LOPERAMIDE HYDROCHLORIDE
     Indication: DIARRHOEA
     Dosage: STRENGTH: 2 MG?2 CAPSULES

REACTIONS (2)
  - Faeces discoloured [Unknown]
  - Mucous stools [Unknown]
